FAERS Safety Report 5639630-8 (Version None)
Quarter: 2008Q1

REPORT INFORMATION
  Report Type: 
  Country: None (occurrence: None)
  Receive Date: 20080226
  Receipt Date: 20080212
  Transmission Date: 20080703
  Serious: Yes (Hospitalization)
  Sender: FDA-Public Use
  Company Number: FR-BAYER-200718372GPV

PATIENT
  Age: 19 Year
  Sex: Male

DRUGS (4)
  1. CAMPATH [Suspect]
     Indication: LYMPHOPROLIFERATIVE DISORDER
     Dosage: TOTAL DAILY DOSE: 3 MG
     Route: 042
     Dates: start: 20070928, end: 20070928
  2. CAMPATH [Suspect]
     Dosage: TOTAL DAILY DOSE: 10 MG
     Route: 042
     Dates: start: 20070929, end: 20070929
  3. CAMPATH [Suspect]
     Dosage: TOTAL DAILY DOSE: 30 MG
     Route: 042
     Dates: start: 20070930, end: 20070930
  4. CAMPATH [Suspect]
     Route: 042
     Dates: start: 20071001, end: 20071022

REACTIONS (3)
  - FEBRILE BONE MARROW APLASIA [None]
  - HYPERTHERMIA [None]
  - PANCYTOPENIA [None]
